FAERS Safety Report 9363073 (Version 1)
Quarter: 2013Q2

REPORT INFORMATION
  Report Type: Spontaneous
  Country: US (occurrence: US)
  Receive Date: 20130624
  Receipt Date: 20130624
  Transmission Date: 20140414
  Serious: No
  Sender: FDA-Public Use
  Company Number: US-PFIZER INC-2013183740

PATIENT
  Age: 87 Year
  Sex: Male
  Weight: 64.4 kg

DRUGS (2)
  1. CELEBREX [Suspect]
     Indication: PAIN
     Dosage: 200 MG, 2X/DAY
     Dates: end: 201306
  2. ASPIRIN [Concomitant]
     Dosage: UNK

REACTIONS (7)
  - Anaemia [Unknown]
  - Blood testosterone decreased [Unknown]
  - Blood disorder [Unknown]
  - Arthralgia [Unknown]
  - Musculoskeletal pain [Unknown]
  - Pain in extremity [Unknown]
  - Movement disorder [Unknown]
